FAERS Safety Report 5277363-0 (Version None)
Quarter: 2007Q1

REPORT INFORMATION
  Report Type: 
  Country: None (occurrence: None)
  Receive Date: 20061213
  Receipt Date: 20041025
  Transmission Date: 20070707
  Serious: Yes (Disabling)
  Sender: FDA-Public Use
  Company Number: 2004UW13518

PATIENT
  Age: 63 Year
  Sex: Female
  Weight: 72.5755 kg

DRUGS (6)
  1. SEROQUEL [Suspect]
     Indication: BIPOLAR DISORDER
     Dosage: 25-100 MG
     Dates: start: 20040210, end: 20040527
  2. EFFEXOR [Concomitant]
  3. PAXIL [Concomitant]
  4. LITHIUM CARBONATE [Concomitant]
  5. LORAZEPAM [Concomitant]
  6. STELAZINE [Concomitant]

REACTIONS (3)
  - CATARACT [None]
  - DRY MOUTH [None]
  - DYSKINESIA [None]
